FAERS Safety Report 6078573-5 (Version None)
Quarter: 2009Q1

REPORT INFORMATION
  Report Type: 
  Country: None (occurrence: None)
  Receive Date: 20090212
  Receipt Date: 20090204
  Transmission Date: 20090719
  Serious: Yes (Death, Hospitalization)
  Sender: FDA-Public Use
  Company Number: 2008EN000188

PATIENT
  Age: 13 Month
  Sex: Male

DRUGS (9)
  1. ADAGEN [Suspect]
     Indication: COMBINED IMMUNODEFICIENCY
     Dosage: IU/KG; IM, IU/KG; IM
     Route: 030
     Dates: end: 20081120
  2. ADAGEN [Suspect]
     Indication: COMBINED IMMUNODEFICIENCY
     Dosage: IU/KG; IM, IU/KG; IM
     Route: 030
     Dates: start: 20071227
  3. RIFAMPICIN [Concomitant]
  4. ISONIAZID [Concomitant]
  5. ETHAMBUTOL [Concomitant]
  6. BACTRIM [Concomitant]
  7. FLUCONAZOLE [Concomitant]
  8. CEFATAZIDIME [Concomitant]
  9. CLARITHROMYCIN [Concomitant]

REACTIONS (4)
  - DISSEMINATED INTRAVASCULAR COAGULATION [None]
  - HAEMOLYTIC ANAEMIA [None]
  - PALLOR [None]
  - TACHYCARDIA [None]
